FAERS Safety Report 6329474-6 (Version None)
Quarter: 2009Q3

REPORT INFORMATION
  Report Type: 
  Country: None (occurrence: None)
  Receive Date: 20090826
  Receipt Date: 20090819
  Transmission Date: 20100115
  Serious: Yes (Hospitalization)
  Sender: FDA-Public Use
  Company Number: US-ELI_LILLY_AND_COMPANY-US200908004788

PATIENT
  Sex: Female

DRUGS (2)
  1. HUMALOG [Suspect]
  2. BENAZEPRIL HYDROCHLORIDE [Concomitant]

REACTIONS (4)
  - BLOOD GLUCOSE INCREASED [None]
  - JOINT ARTHROPLASTY [None]
  - MOBILITY DECREASED [None]
  - WRONG TECHNIQUE IN DRUG USAGE PROCESS [None]
